FAERS Safety Report 10209289 (Version 1)
Quarter: 2014Q2

REPORT INFORMATION
  Report Type: Report from Study
  Country: CA (occurrence: CA)
  Receive Date: 20140530
  Receipt Date: 20140530
  Transmission Date: 20141212
  Serious: Yes (Other)
  Sender: FDA-Public Use
  Company Number: PHHY2014CA066528

PATIENT
  Sex: Female
  Weight: 61 kg

DRUGS (1)
  1. EXTAVIA [Suspect]
     Indication: SECONDARY PROGRESSIVE MULTIPLE SCLEROSIS
     Dosage: 8 MIU, THREE TIMES A WEEK
     Route: 058
     Dates: start: 20110804

REACTIONS (2)
  - Epilepsy [Unknown]
  - Feeling abnormal [Unknown]
